FAERS Safety Report 9448481 (Version 2)
Quarter: 2013Q3

REPORT INFORMATION
  Report Type: Report from Study
  Country: GB (occurrence: GB)
  Receive Date: 20130808
  Receipt Date: 20130820
  Transmission Date: 20140515
  Serious: Yes (Hospitalization)
  Sender: FDA-Public Use
  Company Number: GB-ROCHE-1259371

PATIENT
  Age: 86 Year
  Sex: Female

DRUGS (6)
  1. RANIBIZUMAB [Suspect]
     Indication: PRODUCT USED FOR UNKNOWN INDICATION
     Route: 050
     Dates: start: 20120928
  2. OXYCONTIN [Concomitant]
  3. DICLOFENAC [Concomitant]
  4. AMITRIPTYLINE [Concomitant]
     Route: 065
  5. AMLODIPINE [Concomitant]
  6. VENTOLINE [Concomitant]

REACTIONS (1)
  - Herpes zoster [Recovered/Resolved]
